FAERS Safety Report 7700952-8 (Version None)
Quarter: 2011Q3

REPORT INFORMATION
  Report Type: 
  Country: None (occurrence: None)
  Receive Date: 20110822
  Receipt Date: 20110815
  Transmission Date: 20111222
  Serious: Yes (Hospitalization)
  Sender: FDA-Public Use
  Company Number: FI-ROCHE-797508

PATIENT
  Sex: Female

DRUGS (1)
  1. XELODA [Suspect]
     Dosage: DOSE: 2000 MG PLUS 2500 MG, FREQUENCY: DAILY
     Route: 048
     Dates: start: 20110704, end: 20110715

REACTIONS (9)
  - NEUTROPENIA [None]
  - ILEUS [None]
  - PLATELET COUNT INCREASED [None]
  - COLITIS [None]
  - LEUKOPENIA [None]
  - HYPOKALAEMIA [None]
  - C-REACTIVE PROTEIN INCREASED [None]
  - HYPOMAGNESAEMIA [None]
  - PRODUCTIVE COUGH [None]
